FAERS Safety Report 15813476 (Version 1)
Quarter: 2019Q1

REPORT INFORMATION
  Report Type: Spontaneous
  Country: US (occurrence: US)
  Receive Date: 20190111
  Receipt Date: 20190111
  Transmission Date: 20190417
  Serious: Yes (Other)
  Sender: FDA-Public Use
  Company Number: None

PATIENT
  Age: 43 Year
  Sex: Female
  Weight: 94.5 kg

DRUGS (1)
  1. PROPRANOLOL [Suspect]
     Active Substance: PROPRANOLOL HYDROCHLORIDE
     Indication: MIGRAINE
     Dosage: ?          QUANTITY:1 TABLET(S);?
     Route: 048
     Dates: start: 20081130, end: 20190110

REACTIONS (6)
  - Cardiovascular disorder [None]
  - Dyspnoea [None]
  - Skin laceration [None]
  - Asthenia [None]
  - Limb discomfort [None]
  - Back injury [None]

NARRATIVE: CASE EVENT DATE: 20190110
